FAERS Safety Report 6752486-5 (Version None)
Quarter: 2010Q2

REPORT INFORMATION
  Report Type: 
  Country: None (occurrence: None)
  Receive Date: 20100601
  Receipt Date: 20100601
  Transmission Date: 20101027
  Serious: Yes (Life-Threatening, Hospitalization)
  Sender: FDA-Public Use
  Company Number: None

PATIENT
  Age: 46 Year
  Sex: Female
  Weight: 44.9061 kg

DRUGS (2)
  1. LIALDA [Suspect]
     Indication: COLITIS ULCERATIVE
     Dosage: 4 PILLS DAILY PO
     Route: 048
     Dates: start: 20091001, end: 20100427
  2. CANASA [Suspect]
     Dosage: 1 SUPPOSITORY DAILY RECTAL
     Route: 054
     Dates: start: 20100501, end: 20100510

REACTIONS (3)
  - APPARENT DEATH [None]
  - BACTERIAL INFECTION [None]
  - UNEVALUABLE EVENT [None]
